FAERS Safety Report 4932696-X (Version None)
Quarter: 2006Q1

REPORT INFORMATION
  Report Type: 
  Country: None (occurrence: None)
  Receive Date: 20060301
  Receipt Date: 20060213
  Transmission Date: 20060701
  Serious: Yes (Other)
  Sender: FDA-Public Use
  Company Number: 8015030

PATIENT
  Age: 18 Year
  Sex: Male

DRUGS (2)
  1. DELSYM [Suspect]
     Dosage: 296 ML ONCE PO
     Route: 048
     Dates: start: 20060211, end: 20060211
  2. CORICIDIN [Suspect]
     Dosage: 10 ONCE PO
     Route: 048
     Dates: start: 20060211, end: 20060211

REACTIONS (6)
  - DISORIENTATION [None]
  - DRUG ABUSER [None]
  - INTENTIONAL OVERDOSE [None]
  - SOMNOLENCE [None]
  - SWOLLEN TONGUE [None]
  - VISION BLURRED [None]
